FAERS Safety Report 4531863-7 (Version None)
Quarter: 2004Q4

REPORT INFORMATION
  Report Type: 
  Country: None (occurrence: None)
  Receive Date: 20041220
  Receipt Date: 20041210
  Transmission Date: 20050328
  Serious: Yes (Death)
  Sender: FDA-Public Use
  Company Number: US-JNJFOC-20041008666

PATIENT
  Sex: Male
  Weight: 111.13 kg

DRUGS (4)
  1. DURAGESIC [Suspect]
     Indication: DRUG USE FOR UNKNOWN INDICATION
     Route: 062
  2. MEPROBAMATE [Concomitant]
     Indication: DRUG USE FOR UNKNOWN INDICATION
     Route: 049
  3. TYLENOL (CAPLET) [Concomitant]
     Route: 049
  4. HYDROCODONE [Concomitant]
     Indication: DRUG USE FOR UNKNOWN INDICATION

REACTIONS (5)
  - DEATH [None]
  - DRUG ABUSER [None]
  - DRUG SCREEN POSITIVE [None]
  - HEPATIC NECROSIS [None]
  - OVERDOSE [None]
